FAERS Safety Report 11575878 (Version 1)
Quarter: 2015Q3

REPORT INFORMATION
  Report Type: Spontaneous
  Country: US (occurrence: US)
  Receive Date: 20150916
  Receipt Date: 20150916
  Transmission Date: 20151125
  Serious: No
  Sender: FDA-Public Use
  Company Number: US-ELI_LILLY_AND_COMPANY-US201305000305

PATIENT
  Age: 44 Year
  Sex: Female
  Weight: 73.92 kg

DRUGS (1)
  1. HUMALOG [Suspect]
     Active Substance: INSULIN LISPRO
     Route: 058

REACTIONS (6)
  - Blood glucose increased [Unknown]
  - Infusion site urticaria [Unknown]
  - Infusion site irritation [Unknown]
  - Infusion site infection [Unknown]
  - Headache [Unknown]
  - Infusion site haemorrhage [Unknown]

NARRATIVE: CASE EVENT DATE: 20130424
